FAERS Safety Report 9735546 (Version 1)
Quarter: 2013Q4

REPORT INFORMATION
  Report Type: Spontaneous
  Country: US (occurrence: US)
  Receive Date: 20131206
  Receipt Date: 20131206
  Transmission Date: 20140711
  Serious: No
  Sender: FDA-Public Use
  Company Number: US-GILEAD-2009-0023621

PATIENT
  Age: 65 Year
  Sex: Female

DRUGS (11)
  1. LETAIRIS [Suspect]
     Indication: PULMONARY ARTERIAL HYPERTENSION
     Route: 048
     Dates: start: 20090803
  2. AMLODIPINE [Concomitant]
  3. BUMETANIDE [Concomitant]
  4. SPIRIVA [Concomitant]
  5. XOPENEX [Concomitant]
  6. ZANAFLEX [Concomitant]
  7. ZOLOFT [Concomitant]
  8. ALLI [Concomitant]
  9. ZINC 15 [Concomitant]
  10. CALC/MAGNES [Concomitant]
  11. MULTI VIT [Concomitant]

REACTIONS (2)
  - Nasal congestion [Not Recovered/Not Resolved]
  - Weight increased [Not Recovered/Not Resolved]
